FAERS Safety Report 20332729 (Version 3)
Quarter: 2022Q1

REPORT INFORMATION
  Report Type: Spontaneous
  Country: SA (occurrence: SA)
  Receive Date: 20220113
  Receipt Date: 20220310
  Transmission Date: 20220423
  Serious: Yes (Hospitalization, Other)
  Sender: FDA-Public Use
  Company Number: SA-SA-SAC20211129000069

PATIENT
  Age: 74 Year
  Sex: Female
  Weight: 83 kg

DRUGS (2)
  1. LANTUS SOLOSTAR [Suspect]
     Active Substance: INSULIN GLARGINE
     Indication: Diabetes mellitus
     Dosage: 50 IU, QD
     Route: 058
  2. LANTUS SOLOSTAR [Suspect]
     Active Substance: INSULIN GLARGINE
     Dosage: 80 IU, QD
     Route: 058

REACTIONS (4)
  - Haematemesis [Unknown]
  - Melaena [Unknown]
  - Gastric ulcer [Unknown]
  - Hyperglycaemia [Unknown]
